FAERS Safety Report 6822240-4 (Version None)
Quarter: 2010Q3

REPORT INFORMATION
  Report Type: 
  Country: None (occurrence: None)
  Receive Date: 20100708
  Receipt Date: 20100629
  Transmission Date: 20110219
  Serious: Yes (Life-Threatening, Hospitalization, Other)
  Sender: FDA-Public Use
  Company Number: US-JNJFOC-20100700206

PATIENT
  Age: 67 Year
  Sex: Female

DRUGS (2)
  1. DOXORUBICIN HYDROCHLORIDE [Suspect]
     Indication: BREAST CANCER RECURRENT
     Route: 042
  2. ASPIRIN [Concomitant]
     Indication: PRODUCT USED FOR UNKNOWN INDICATION
     Route: 065

REACTIONS (2)
  - ACUTE MYOCARDIAL INFARCTION [None]
  - INFUSION RELATED REACTION [None]
